FAERS Safety Report 8007585-7 (Version None)
Quarter: 2011Q4

REPORT INFORMATION
  Report Type: 
  Country: None (occurrence: None)
  Receive Date: 20111227
  Receipt Date: 20111122
  Transmission Date: 20120403
  Serious: No
  Sender: FDA-Public Use
  Company Number: US-BAYER-2011-114001

PATIENT

DRUGS (1)
  1. AVELOX [Suspect]
     Dosage: 400 MG, UNK

REACTIONS (1)
  - HEPATIC ENZYME INCREASED [None]
